FAERS Safety Report 9059946 (Version 1)
Quarter: 2013Q1

REPORT INFORMATION
  Report Type: Spontaneous
  Country: US (occurrence: US)
  Receive Date: 20130212
  Receipt Date: 20130212
  Transmission Date: 20140127
  Serious: No
  Sender: FDA-Public Use
  Company Number: US-FOUGERA-2012FO001062

PATIENT
  Age: 21 Year
  Sex: Male

DRUGS (2)
  1. OXISTAT [Suspect]
     Indication: CHEILITIS
     Route: 061
     Dates: start: 20120328, end: 20120330
  2. METROGEL [Suspect]
     Indication: ROSACEA
     Route: 061
     Dates: start: 20120328, end: 20120402

REACTIONS (8)
  - Fatigue [Not Recovered/Not Resolved]
  - Swelling [Not Recovered/Not Resolved]
  - Headache [Not Recovered/Not Resolved]
  - Decreased appetite [Not Recovered/Not Resolved]
  - Nausea [Not Recovered/Not Resolved]
  - Dizziness [Not Recovered/Not Resolved]
  - Paraesthesia [Not Recovered/Not Resolved]
  - Erythema [Not Recovered/Not Resolved]
